FAERS Safety Report 8359965-8 (Version None)
Quarter: 2012Q2

REPORT INFORMATION
  Report Type: 
  Country: None (occurrence: None)
  Receive Date: 20120515
  Receipt Date: 20120504
  Transmission Date: 20120825
  Serious: Yes (Hospitalization)
  Sender: FDA-Public Use
  Company Number: FR-JNJFOC-20120506481

PATIENT
  Sex: Female

DRUGS (2)
  1. REMICADE [Suspect]
     Indication: CROHN'S DISEASE
     Route: 042
     Dates: start: 20111004
  2. REMICADE [Suspect]
     Route: 042

REACTIONS (6)
  - ARTHRALGIA [None]
  - ANAPHYLACTOID SHOCK [None]
  - ASTHENIA [None]
  - URTICARIA [None]
  - PYREXIA [None]
  - C-REACTIVE PROTEIN INCREASED [None]
